FAERS Safety Report 9355197 (Version 2)
Quarter: 2014Q2

REPORT INFORMATION
  Report Type: Report from Study
  Country: NZ (occurrence: NZ)
  Receive Date: 20130619
  Receipt Date: 20140422
  Transmission Date: 20141212
  Serious: Yes (Hospitalization)
  Sender: FDA-Public Use
  Company Number: PHHO2013NZ007938

PATIENT
  Age: 58 Year
  Sex: Female
  Weight: 61.8 kg

DRUGS (2)
  1. AFINITOR [Suspect]
     Indication: NEOPLASM
     Dosage: 2.5 MG, QD
     Route: 048
     Dates: start: 20130220, end: 20130611
  2. BEZ235 [Suspect]
     Indication: NEOPLASM
     Dosage: 50 MG, BID
     Route: 048
     Dates: start: 20130220, end: 20130611

REACTIONS (1)
  - Pulmonary embolism [Recovering/Resolving]
